FAERS Safety Report 9757824 (Version 3)
Quarter: 2014Q1

REPORT INFORMATION
  Report Type: Report from Study
  Country: US (occurrence: US)
  Receive Date: 20131216
  Receipt Date: 20140102
  Transmission Date: 20141002
  Serious: Yes (Other)
  Sender: FDA-Public Use
  Company Number: US-ROCHE-1275976

PATIENT
  Age: 48 Year
  Sex: Female
  Weight: 71.73 kg

DRUGS (7)
  1. ACTEMRA [Suspect]
     Indication: RHEUMATOID ARTHRITIS
     Route: 042
     Dates: start: 20130529
  2. ACTEMRA [Suspect]
     Dosage: EVERY 4 WEEKS
     Route: 042
     Dates: start: 20130626
  3. ACTEMRA [Suspect]
     Dosage: EVERY 4 WEEKS
     Route: 042
     Dates: start: 20130724
  4. ACTEMRA [Suspect]
     Dosage: EVERY 4 WEEKS
     Route: 042
     Dates: start: 20130828
  5. ACTEMRA [Suspect]
     Route: 042
     Dates: start: 20131127
  6. CELLCEPT [Suspect]
     Indication: PRODUCT USED FOR UNKNOWN INDICATION
     Dosage: 1 CAPSULE BY MOUTH ONCE A DAY
     Route: 065
  7. BENADRYL (UNITED STATES) [Concomitant]
     Indication: PREMEDICATION
     Dosage: PRE-MEDICATION PRIOR TO ACTEMRA
     Route: 050

REACTIONS (9)
  - Raynaud^s phenomenon [Unknown]
  - Alanine aminotransferase increased [Unknown]
  - Aspartate aminotransferase increased [Unknown]
  - Local swelling [Unknown]
  - Diarrhoea [Not Recovered/Not Resolved]
  - Abdominal pain upper [Not Recovered/Not Resolved]
  - Gallbladder disorder [Not Recovered/Not Resolved]
  - Skin discolouration [Unknown]
  - Abdominal distension [Not Recovered/Not Resolved]
